FAERS Safety Report 7762947-8 (Version None)
Quarter: 2011Q3

REPORT INFORMATION
  Report Type: 
  Country: None (occurrence: None)
  Receive Date: 20110920
  Receipt Date: 20110914
  Transmission Date: 20111222
  Serious: Yes (Death, Other)
  Sender: FDA-Public Use
  Company Number: KR-ELI_LILLY_AND_COMPANY-KR201109000444

PATIENT
  Age: 71 Year
  Sex: Female

DRUGS (2)
  1. HUMALOG MIX 75/25 [Suspect]
     Indication: DIABETES MELLITUS
     Dosage: 12 U, EACH MORNING
     Dates: start: 20110801
  2. HUMALOG MIX 75/25 [Suspect]
     Dosage: 4 U, EACH EVENING
     Dates: start: 20110801

REACTIONS (6)
  - COLD SWEAT [None]
  - VOMITING [None]
  - DEATH [None]
  - LISTLESS [None]
  - APPETITE DISORDER [None]
  - DIARRHOEA [None]
